FAERS Safety Report 22089636 (Version 5)
Quarter: 2023Q2

REPORT INFORMATION
  Report Type: Report from Study
  Country: DE (occurrence: DE)
  Receive Date: 20230313
  Receipt Date: 20230629
  Transmission Date: 20230721
  Serious: Yes (Hospitalization)
  Sender: FDA-Public Use
  Company Number: DE-ARGENX-2023-ARGX-DE000773

PATIENT
  Sex: Male

DRUGS (3)
  1. VYVGART [Suspect]
     Active Substance: EFGARTIGIMOD ALFA-FCAB
     Indication: Myasthenia gravis
     Dosage: UNK
     Route: 042
     Dates: start: 20230216
  2. VYVGART [Suspect]
     Active Substance: EFGARTIGIMOD ALFA-FCAB
     Dosage: UNK
     Route: 042
     Dates: start: 20230226
  3. VYVGART [Suspect]
     Active Substance: EFGARTIGIMOD ALFA-FCAB
     Dosage: UNK

REACTIONS (6)
  - Abscess limb [Recovering/Resolving]
  - Fall [Unknown]
  - Dizziness [Unknown]
  - Head injury [Unknown]
  - Internal haemorrhage [Unknown]
  - Abscess limb [Unknown]

NARRATIVE: CASE EVENT DATE: 20230101
